FAERS Safety Report 23401176 (Version 1)
Quarter: 2024Q1

REPORT INFORMATION
  Report Type: Spontaneous
  Country: CZ (occurrence: CZ)
  Receive Date: 20240115
  Receipt Date: 20240115
  Transmission Date: 20240409
  Serious: Yes (Death, Hospitalization, Other)
  Sender: FDA-Public Use
  Company Number: CZ-NOVPHSZ-PHHY2018CZ152967

PATIENT
  Age: 24 Year
  Sex: Female

DRUGS (9)
  1. CISPLATIN [Suspect]
     Active Substance: CISPLATIN
     Indication: Lung adenocarcinoma
     Dosage: UNK
     Route: 065
     Dates: start: 20140620
  2. DOCETAXEL [Suspect]
     Active Substance: DOCETAXEL\DOCETAXEL ANHYDROUS
     Dosage: UNK, Q3W
     Route: 042
     Dates: start: 20140821, end: 20140821
  3. DOCETAXEL [Suspect]
     Active Substance: DOCETAXEL\DOCETAXEL ANHYDROUS
     Dosage: UNK, Q3W
     Route: 042
     Dates: start: 201411
  4. DOCETAXEL [Suspect]
     Active Substance: DOCETAXEL\DOCETAXEL ANHYDROUS
     Indication: Lung adenocarcinoma
     Dosage: DAILY 400 MG ADMINISTERED ON DAYS 2-22 OF THE CYCLE IN COMBINATION WITH NINTEDANIB
     Route: 042
     Dates: start: 20140821, end: 201411
  5. DENOSUMAB [Suspect]
     Active Substance: DENOSUMAB
     Indication: Metastases to bone
     Dosage: UNK
     Route: 065
  6. FOLIC ACID [Suspect]
     Active Substance: FOLIC ACID
     Indication: Non-small cell lung cancer stage IV
     Dosage: UNK
     Route: 065
  7. NINTEDANIB [Suspect]
     Active Substance: NINTEDANIB
     Indication: Non-small cell lung cancer stage IV
     Dosage: 400 MG, QD
     Route: 065
     Dates: start: 20140821, end: 20141107
  8. PEMETREXED [Suspect]
     Active Substance: PEMETREXED
     Indication: Non-small cell lung cancer stage IV
     Dosage: UNK
     Route: 065
     Dates: start: 20140620
  9. PEMETREXED DISODIUM [Suspect]
     Active Substance: PEMETREXED DISODIUM
     Indication: Non-small cell lung cancer stage IV
     Dosage: UNK
     Route: 065
     Dates: start: 201406

REACTIONS (15)
  - Disease progression [Fatal]
  - Intestinal haemorrhage [Unknown]
  - Duodenal ulcer haemorrhage [Unknown]
  - Hypokalaemia [Unknown]
  - Candida infection [Recovered/Resolved]
  - Oral candidiasis [Unknown]
  - Gastrointestinal toxicity [Unknown]
  - Hepatotoxicity [Unknown]
  - Hypocalcaemia [Not Recovered/Not Resolved]
  - Vomiting [Unknown]
  - Therapeutic response decreased [Unknown]
  - Diarrhoea [Recovered/Resolved]
  - Nausea [Unknown]
  - Anaemia [Unknown]
  - Oral pain [Unknown]

NARRATIVE: CASE EVENT DATE: 20140101
